FAERS Safety Report 7249252-3 (Version None)
Quarter: 2011Q1

REPORT INFORMATION
  Report Type: 
  Country: None (occurrence: None)
  Receive Date: 20110128
  Receipt Date: 20101203
  Transmission Date: 20110831
  Serious: Yes (Hospitalization)
  Sender: FDA-Public Use
  Company Number: US-BAYER-2010-006780

PATIENT
  Sex: Female

DRUGS (6)
  1. OMEPRAZOLE [Concomitant]
  2. BUSPIRONE [Concomitant]
  3. MULTI-VITAMIN [Concomitant]
  4. IBUPROFEN [Concomitant]
  5. YASMIN [Suspect]
     Indication: CONTRACEPTION
     Dosage: 1 TAB / DAY
     Dates: start: 20040101, end: 20091201
  6. OCELLA [Suspect]
     Indication: CONTRACEPTION
     Dosage: 1 TAB / DAY
     Dates: start: 20040101, end: 20091201

REACTIONS (5)
  - NAUSEA [None]
  - WEIGHT FLUCTUATION [None]
  - BILIARY DYSKINESIA [None]
  - VOMITING [None]
  - CHOLECYSTITIS CHRONIC [None]
